FAERS Safety Report 17039328 (Version 1)
Quarter: 2019Q4

REPORT INFORMATION
  Report Type: Spontaneous
  Country: MX (occurrence: MX)
  Receive Date: 20191115
  Receipt Date: 20191115
  Transmission Date: 20200122
  Serious: Yes (Other)
  Sender: FDA-Public Use
  Company Number: MX-009507513-1911MEX005994

PATIENT
  Age: 23 Year
  Sex: Female

DRUGS (1)
  1. IMPLANON NXT [Suspect]
     Active Substance: ETONOGESTREL
     Dosage: 1 DOSAGE FORM
     Route: 059
     Dates: start: 20190412, end: 20190615

REACTIONS (3)
  - Pregnancy with implant contraceptive [Unknown]
  - Anembryonic gestation [Unknown]
  - Unintended pregnancy [Unknown]
